FAERS Safety Report 16188010 (Version 1)
Quarter: 2019Q2

REPORT INFORMATION
  Report Type: Spontaneous
  Country: FR (occurrence: FR)
  Receive Date: 20190412
  Receipt Date: 20190412
  Transmission Date: 20190711
  Serious: Yes (Other)
  Sender: FDA-Public Use
  Company Number: FR-AUROBINDO-AUR-APL-2019-018797

PATIENT

DRUGS (1)
  1. ALPRAZOLAM. [Suspect]
     Active Substance: ALPRAZOLAM
     Indication: INSOMNIA
     Dosage: UNK
     Route: 048
     Dates: start: 20181125, end: 20190212

REACTIONS (6)
  - Depersonalisation/derealisation disorder [Not Recovered/Not Resolved]
  - Irritability [Recovered/Resolved]
  - Confusional state [Not Recovered/Not Resolved]
  - Withdrawal syndrome [Recovered/Resolved]
  - Derealisation [Not Recovered/Not Resolved]
  - Insomnia [Recovered/Resolved]

NARRATIVE: CASE EVENT DATE: 201902
